FAERS Safety Report 24224343 (Version 1)
Quarter: 2024Q3

REPORT INFORMATION
  Report Type: Spontaneous
  Country: US (occurrence: US)
  Receive Date: 20240819
  Receipt Date: 20240819
  Transmission Date: 20241017
  Serious: No
  Sender: JOHNSON AND JOHNSON
  Company Number: US-ViiV Healthcare Limited-114712

PATIENT

DRUGS (2)
  1. RILPIVIRINE [Suspect]
     Active Substance: RILPIVIRINE
     Indication: HIV infection
     Dosage: UNK UNK, MO (600/900 MG/ EVERY OTHER MONTH)
     Route: 030
     Dates: start: 20240305
  2. CABOTEGRAVIR [Suspect]
     Active Substance: CABOTEGRAVIR
     Indication: HIV infection
     Route: 030

REACTIONS (1)
  - Viral load increased [Unknown]

NARRATIVE: CASE EVENT DATE: 20240801
